FAERS Safety Report 14232924 (Version 1)
Quarter: 2017Q4

REPORT INFORMATION
  Report Type: Spontaneous
  Country: RU (occurrence: RU)
  Receive Date: 20171129
  Receipt Date: 20171129
  Transmission Date: 20180321
  Serious: Yes (Disabling, Other)
  Sender: FDA-Public Use
  Company Number: RU-ASTRAZENECA-2017SF20103

PATIENT
  Age: 61 Year
  Sex: Male
  Weight: 88 kg

DRUGS (3)
  1. ATORIS [Concomitant]
     Active Substance: ATORVASTATIN CALCIUM
  2. BRILINTA [Suspect]
     Active Substance: TICAGRELOR
     Indication: MYOCARDIAL INFARCTION
     Route: 048
     Dates: start: 201701, end: 20170215
  3. CARDIOMAGNYL [Concomitant]
     Active Substance: ASPIRIN\MAGNESIUM HYDROXIDE

REACTIONS (3)
  - Vascular stent thrombosis [Unknown]
  - Off label use [Unknown]
  - Product use issue [Unknown]
